FAERS Safety Report 5262570-3 (Version None)
Quarter: 2007Q1

REPORT INFORMATION
  Report Type: 
  Country: None (occurrence: None)
  Receive Date: 20070309
  Receipt Date: 20070309
  Transmission Date: 20070707
  Serious: Yes (Other)
  Sender: FDA-Public Use
  Company Number: None

PATIENT
  Age: 45 Year
  Sex: Male
  Weight: 84 kg

DRUGS (9)
  1. HALOPERIDOL [Suspect]
     Indication: AGITATION
     Dosage: 4 MG Q 6 H PO OR 4 MG Q6H IV
     Route: 050
     Dates: start: 20070215, end: 20070216
  2. HALOPERIDOL [Suspect]
     Indication: PSYCHOTIC DISORDER
     Dosage: 4 MG Q 6 H PO OR 4 MG Q6H IV
     Route: 050
     Dates: start: 20070215, end: 20070216
  3. CLINDAMYCIN [Concomitant]
  4. MORPHINE [Concomitant]
  5. CARISOPRODOL [Concomitant]
  6. VANCOMYCIN [Concomitant]
  7. VICODIN [Concomitant]
  8. LORAZEPAM [Concomitant]
  9. ZANTAC [Concomitant]

REACTIONS (2)
  - DISCOMFORT [None]
  - MUSCLE RIGIDITY [None]
